FAERS Safety Report 5835448-1 (Version None)
Quarter: 2008Q3

REPORT INFORMATION
  Report Type: 
  Country: None (occurrence: None)
  Receive Date: 20080804
  Receipt Date: 20080728
  Transmission Date: 20090109
  Serious: Yes (Hospitalization)
  Sender: FDA-Public Use
  Company Number: CLOF-1000232

PATIENT
  Age: 60 Year
  Sex: Male
  Weight: 46.6298 kg

DRUGS (21)
  1. CLOLAR [Suspect]
     Indication: CHRONIC LYMPHOCYTIC LEUKAEMIA
     Dosage: 72 MG, QDX5, INTRAVENOUS
     Route: 042
     Dates: start: 20080604, end: 20080608
  2. BUSULFAN (BUSULFAN) [Suspect]
     Indication: CHRONIC LYMPHOCYTIC LEUKAEMIA
     Dosage: 307 MG, QD, INTRAVENOUS
     Route: 042
     Dates: start: 20080605, end: 20080608
  3. ACYCLOVIR [Concomitant]
  4. ADVAIR DISKUS 100/50 [Concomitant]
  5. ALBUTEROL (SALBUTAMOL SULFATE) [Concomitant]
  6. ATIVAN [Concomitant]
  7. BUPROPION HCL [Concomitant]
  8. CLOBETASOL (CLOBETASOL PROPIONATE) [Concomitant]
  9. CYCLOSPORINE [Concomitant]
  10. LANTUS [Concomitant]
  11. LEVAQUIN [Concomitant]
  12. MAGNESIUM SULFATE [Concomitant]
  13. MICAFUNGIN (MICAFUNGIN) [Concomitant]
  14. MYCOPHENOLATE (MYCOPHENOLATE MOFETIL) [Concomitant]
  15. NOVOLOG [Concomitant]
  16. NYSTATIN [Concomitant]
  17. OXYCODONE HCL [Concomitant]
  18. PANTOPRAZOLE SODIUM [Concomitant]
  19. SINGULAIR [Concomitant]
  20. TACROLUMIS (TACROLIMUS) [Concomitant]
  21. VALTREX [Concomitant]

REACTIONS (2)
  - DYSPHAGIA [None]
  - OESOPHAGITIS [None]
